FAERS Safety Report 16744622 (Version 8)
Quarter: 2022Q2

REPORT INFORMATION
  Report Type: Spontaneous
  Country: US (occurrence: US)
  Receive Date: 20190827
  Receipt Date: 20220427
  Transmission Date: 20220721
  Serious: No
  Sender: FDA-Public Use
  Company Number: US-PFIZER INC-2019363820

PATIENT
  Age: 67 Year
  Sex: Female
  Weight: 121 kg

DRUGS (24)
  1. LYRICA [Suspect]
     Active Substance: PREGABALIN
     Dosage: 150 MG, 2X/DAY
     Route: 048
     Dates: start: 20190131
  2. LYRICA [Suspect]
     Active Substance: PREGABALIN
     Dosage: 300 MG, DAILY (2 CAPSULES BY MOUTH DAILY)
     Route: 048
  3. AMLODIPINE BESYLATE [Concomitant]
     Active Substance: AMLODIPINE BESYLATE
     Dosage: 5 MG, 1X/DAY
     Route: 048
     Dates: start: 20170911
  4. ASPIRIN [Concomitant]
     Active Substance: ASPIRIN
     Dosage: 81 MG, 1X/DAY
     Route: 048
     Dates: start: 20180806
  5. CLONAZEPAM [Concomitant]
     Active Substance: CLONAZEPAM
     Indication: Neuralgia
     Dosage: 1 MG, 1X/DAY (EVERY BEDTIME)
     Route: 048
     Dates: start: 20180806
  6. CYMBALTA [Concomitant]
     Active Substance: DULOXETINE HYDROCHLORIDE
     Dosage: 60 MG, 1X/DAY
     Route: 048
     Dates: start: 20191025
  7. DICLOFENAC SODIUM [Concomitant]
     Active Substance: DICLOFENAC SODIUM
     Dosage: 75 MG, 2X/DAY
     Route: 048
     Dates: start: 20191025
  8. FUROSEMIDE [Concomitant]
     Active Substance: FUROSEMIDE
     Dosage: 40 MG, AS NEEDED
     Route: 048
     Dates: start: 20190416
  9. GABAPENTIN [Concomitant]
     Active Substance: GABAPENTIN
     Dosage: 1200 MG, 3X/DAY
     Dates: start: 2017
  10. GABAPENTIN [Concomitant]
     Active Substance: GABAPENTIN
     Dosage: 1200 MG, 3X/DAY
     Route: 048
     Dates: start: 20180705
  11. HYZAAR [Concomitant]
     Active Substance: HYDROCHLOROTHIAZIDE\LOSARTAN POTASSIUM
     Dosage: 1 DF, DAILY (25MG-100MG)
     Route: 048
     Dates: start: 20170719
  12. METFORMIN [Concomitant]
     Active Substance: METFORMIN HYDROCHLORIDE
     Dosage: 1000 MG, 2X/DAY
     Route: 048
     Dates: start: 20150716
  13. METRONIDAZOLE [Concomitant]
     Active Substance: METRONIDAZOLE
     Dosage: UNK, 2X/DAY
     Route: 061
     Dates: start: 20190805
  14. NOVOLOG [Concomitant]
     Active Substance: INSULIN ASPART
     Dosage: UNK
     Dates: start: 20180705
  15. OMEPRAZOLE [Concomitant]
     Active Substance: OMEPRAZOLE
     Dosage: 20 MG, DAILY
     Route: 048
     Dates: start: 20150811
  16. POTASSIUM CHLORIDE [Concomitant]
     Active Substance: POTASSIUM CHLORIDE
     Dosage: 10 MEQ, AS NEEDED
     Dates: start: 20190416
  17. PRAMIPEXOLE [Concomitant]
     Active Substance: PRAMIPEXOLE
     Dosage: 0.5 MG, 1X/DAY
     Route: 048
     Dates: start: 20190617
  18. PRASUGREL HYDROCHLORIDE [Concomitant]
     Active Substance: PRASUGREL HYDROCHLORIDE
     Dosage: 10 MG, 1X/DAY
     Route: 048
     Dates: start: 20191025
  19. PROAIR HFA [Concomitant]
     Active Substance: ALBUTEROL SULFATE
     Dosage: UNK, AS NEEDED
     Dates: start: 20160315
  20. ROSUVASTATIN [Concomitant]
     Active Substance: ROSUVASTATIN
     Dosage: 20 MG, 1X/DAY
     Route: 048
     Dates: start: 20190213
  21. SINGULAIR [Concomitant]
     Active Substance: MONTELUKAST SODIUM
     Dosage: 10 MG, 1X/DAY
     Route: 048
     Dates: start: 20190617
  22. SYMBICORT [Concomitant]
     Active Substance: BUDESONIDE\FORMOTEROL FUMARATE DIHYDRATE
     Dosage: UNK, 2X/DAY
     Route: 055
     Dates: start: 20160531
  23. TRIAMCINOLONE ACETONIDE [Concomitant]
     Active Substance: TRIAMCINOLONE ACETONIDE
     Dosage: UNK, 2X/DAY
     Dates: start: 20190521
  24. VITAMIN D3 [Concomitant]
     Active Substance: CHOLECALCIFEROL
     Dosage: 1 DF, DAILY
     Route: 048
     Dates: start: 20180705

REACTIONS (5)
  - Abdominal discomfort [Recovered/Resolved]
  - Flatulence [Unknown]
  - Abdominal distension [Unknown]
  - Abdominal pain [Unknown]
  - Product prescribing error [Unknown]

NARRATIVE: CASE EVENT DATE: 20190101
